FAERS Safety Report 13424727 (Version 2)
Quarter: 2017Q2

REPORT INFORMATION
  Report Type: Spontaneous
  Country: US (occurrence: US)
  Receive Date: 20170410
  Receipt Date: 20170419
  Transmission Date: 20170830
  Serious: No
  Sender: FDA-Public Use
  Company Number: US-PFIZER INC-2017152091

PATIENT
  Age: 68 Year
  Sex: Female
  Weight: 76.2 kg

DRUGS (22)
  1. METHENAMINE HIPPURATE. [Concomitant]
     Active Substance: METHENAMINE HIPPURATE
     Indication: GASTRIC DISORDER
     Dosage: 1 G, 2X/DAY WTIH MEALS
     Route: 048
     Dates: start: 201702
  2. DULOXETINE. [Concomitant]
     Active Substance: DULOXETINE
     Indication: ANTIDEPRESSANT THERAPY
     Dosage: 60 MG, ONCE A DAY
     Route: 048
     Dates: start: 201702
  3. ADVAIR HFA [Concomitant]
     Active Substance: FLUTICASONE PROPIONATE\SALMETEROL XINAFOATE
     Indication: BRONCHITIS
     Dosage: 2 PUFFS ONCE A DAY EVERY MORNING
  4. HYDROCHLOROTHIAZIDE. [Concomitant]
     Active Substance: HYDROCHLOROTHIAZIDE
     Indication: BLOOD PRESSURE ABNORMAL
     Dosage: 25 MG, ONCE A DAY
     Route: 048
  5. LOVASTATIN. [Concomitant]
     Active Substance: LOVASTATIN
     Indication: CEREBROVASCULAR ACCIDENT
     Dosage: 20 MG, DAILY WITH MEALS
  6. ALENDRONATE SODIUM. [Concomitant]
     Active Substance: ALENDRONATE SODIUM
     Indication: VAGINAL INFECTION
  7. CLOTRIMAZOLE AND BETAMETHASONE [Concomitant]
     Active Substance: BETAMETHASONE\CLOTRIMAZOLE
     Indication: VAGINAL INFECTION
     Dosage: TWICE A DAY, APPLY TO EXTERNALLY TO AFFECTIVE AREA
  8. NITROFURANTOIN MACROCRYSTALS [Concomitant]
     Active Substance: NITROFURANTOIN
     Dosage: 100 MG, DAILY (WITH FOOD)
     Route: 048
  9. MELOXICAM. [Concomitant]
     Active Substance: MELOXICAM
     Indication: ANTIINFLAMMATORY THERAPY
     Dosage: 7.5MG ONCE DAILY
  10. OSPHENA [Concomitant]
     Active Substance: OSPEMIFENE
     Dosage: 60 MG ONCE A DAY WITH FOOD
  11. LYRICA [Suspect]
     Active Substance: PREGABALIN
     Indication: ARTHRITIS
     Dosage: 75 MG, 2X/DAY
  12. HYDROCODONE BITARTRATE AND ACETAMINOPHEN [Concomitant]
     Active Substance: ACETAMINOPHEN\HYDROCODONE BITARTRATE
     Indication: PAIN
     Dosage: AS NEEDED (EVERY 4 HOURS)
     Route: 048
  13. ESTRACE [Concomitant]
     Active Substance: ESTRADIOL
     Indication: VAGINAL INFECTION
     Dosage: THREE TIMES A WEEK
  14. LAMOTRIGINE. [Concomitant]
     Active Substance: LAMOTRIGINE
     Indication: SEIZURE
     Dosage: 25 MG, TWICE A DAY
     Dates: start: 2016
  15. PANTOPRAZOLE SODIUM. [Concomitant]
     Active Substance: PANTOPRAZOLE SODIUM
     Dosage: 40MG ONCE A DAY
     Route: 048
  16. AMLODIPINE/BENAZEPRIL [Concomitant]
     Active Substance: AMLODIPINE BESYLATE\BENAZEPRIL HYDROCHLORIDE
     Indication: BLOOD CHOLESTEROL ABNORMAL
     Dosage: 5MG/10MG ONCE A DAY
     Route: 048
  17. MYRBETRIQ [Concomitant]
     Active Substance: MIRABEGRON
     Dosage: 25MG TWICE A DAY
  18. LAMOTRIGINE. [Concomitant]
     Active Substance: LAMOTRIGINE
     Indication: LOSS OF CONSCIOUSNESS
  19. ASPIRIN. [Concomitant]
     Active Substance: ASPIRIN
     Indication: ANTICOAGULANT THERAPY
     Dosage: 81 MG, ONCE DAILY
     Route: 048
  20. ALENDRONATE SODIUM. [Concomitant]
     Active Substance: ALENDRONATE SODIUM
     Indication: BLADDER DISORDER
     Dosage: 70 MG, WEEKLY
  21. LYRICA [Suspect]
     Active Substance: PREGABALIN
     Indication: OSTEOARTHRITIS
     Dosage: 75 MG, 3X/DAY
     Dates: start: 20170403
  22. PROAIR HFA [Concomitant]
     Active Substance: ALBUTEROL SULFATE
     Indication: ASTHMA
     Dosage: 90 MCG AS NEEDED
     Route: 055

REACTIONS (2)
  - Intentional product use issue [Unknown]
  - Drug ineffective for unapproved indication [Unknown]
